FAERS Safety Report 8819286 (Version 1)
Quarter: 2012Q4

REPORT INFORMATION
  Report Type: Spontaneous
  Country: BR (occurrence: None)
  Receive Date: 20121003
  Receipt Date: 20121003
  Transmission Date: 20130627
  Serious: Yes (Hospitalization)
  Sender: FDA-Public Use
  Company Number: DSJ-2012-16503

PATIENT
  Age: 69 Year
  Sex: Male

DRUGS (1)
  1. AMLODIPINE BESYLATE\OLMESARTAN MEDOXOMIL [Suspect]
     Indication: HYPERTENSION
     Dosage: 40/5mg (1 in 1 D), Per oral
     Route: 048
     Dates: start: 20120817

REACTIONS (2)
  - Hypertension [None]
  - Inguinal hernia repair [None]
